FAERS Safety Report 7789419-9 (Version None)
Quarter: 2011Q3

REPORT INFORMATION
  Report Type: 
  Country: None (occurrence: None)
  Receive Date: 20110930
  Receipt Date: 20110923
  Transmission Date: 20111222
  Serious: Yes (Hospitalization)
  Sender: FDA-Public Use
  Company Number: US-B.I. PHARMACEUTICALS,INC./RIDGEFIELD-2011-BP-20568BP

PATIENT
  Sex: Female
  Weight: 86 kg

DRUGS (12)
  1. DILTIAZEM HCL [Concomitant]
     Dosage: 240 MG
  2. ACETAMINOPHEN [Concomitant]
  3. VITAMIN B COMPLEX CAP [Concomitant]
  4. POTASSIUM CHLORIDE [Concomitant]
     Dosage: 20 MEQ
  5. ASCORBIC ACID [Concomitant]
     Dosage: 500 MG
  6. FUROSEMIDE [Concomitant]
     Dosage: 80 MG
  7. OMEPRAZOLE [Concomitant]
     Dosage: 40 MG
  8. PRADAXA [Suspect]
     Indication: ATRIAL FIBRILLATION
     Dosage: 300 MG
     Route: 048
     Dates: start: 20110706, end: 20110814
  9. LIBRIUM [Concomitant]
     Dosage: 10 MG
  10. ASPIRIN [Concomitant]
     Dosage: 81 MG
  11. IBUPROFEN [Concomitant]
  12. TRIBENZOR [Concomitant]

REACTIONS (5)
  - LACERATION [None]
  - GASTROINTESTINAL HAEMORRHAGE [None]
  - CONTUSION [None]
  - RENAL FAILURE ACUTE [None]
  - FALL [None]
